FAERS Safety Report 5001572-9 (Version None)
Quarter: 2006Q2

REPORT INFORMATION
  Report Type: 
  Country: None (occurrence: None)
  Receive Date: 20060515
  Receipt Date: 20060504
  Transmission Date: 20061013
  Serious: Yes (Hospitalization)
  Sender: FDA-Public Use
  Company Number: US-JNJFOC-20060501244

PATIENT
  Sex: Female
  Weight: 58.97 kg

DRUGS (21)
  1. REMICADE [Suspect]
     Indication: RHEUMATOID ARTHRITIS
     Route: 042
  2. NAMENDA [Concomitant]
  3. EXELON [Concomitant]
  4. SYNTHROID [Concomitant]
  5. METOPROLOL TARTRATE [Concomitant]
  6. RANITIDINE [Concomitant]
  7. LIPITOR [Concomitant]
  8. AMITRIPTYLINE HCL [Concomitant]
  9. DETROL [Concomitant]
  10. CALCIUM+D [Concomitant]
  11. CALCIUM+D [Concomitant]
  12. THERAGRAN-M [Concomitant]
  13. THERAGRAN-M [Concomitant]
  14. ASPIRIN [Concomitant]
  15. VITAMIN E [Concomitant]
  16. FERROUS SULFATE TAB [Concomitant]
  17. ACTONEL [Concomitant]
  18. PLAVIX [Concomitant]
  19. PREMARIN [Concomitant]
  20. FLUOCINONIDE [Concomitant]
  21. LASIX [Concomitant]

REACTIONS (2)
  - DIARRHOEA [None]
  - FALL [None]
